FAERS Safety Report 15342296 (Version 1)
Quarter: 2018Q3

REPORT INFORMATION
  Report Type: Spontaneous
  Country: FR (occurrence: FR)
  Receive Date: 20180902
  Receipt Date: 20180902
  Transmission Date: 20181010
  Serious: Yes (Other)
  Sender: FDA-Public Use
  Company Number: FR-ROCHE-2178377

PATIENT
  Age: 31 Year
  Sex: Female

DRUGS (1)
  1. DIAZEPAM. [Suspect]
     Active Substance: DIAZEPAM
     Indication: CHEMICAL SUBMISSION
     Route: 065
     Dates: start: 20170217

REACTIONS (1)
  - Victim of chemical submission [Recovered/Resolved]

NARRATIVE: CASE EVENT DATE: 20170217
